FAERS Safety Report 4947918-9 (Version None)
Quarter: 2006Q1

REPORT INFORMATION
  Report Type: 
  Country: None (occurrence: None)
  Receive Date: 20060314
  Receipt Date: 20060227
  Transmission Date: 20060701
  Serious: Yes (Death, Life-Threatening)
  Sender: FDA-Public Use
  Company Number: CIP04000433

PATIENT
  Age: 34 Year
  Sex: Male

DRUGS (1)
  1. DANTRIUM [Suspect]
     Indication: CONVULSION
     Dosage: 50 MG DAILY, ORAL
     Route: 048

REACTIONS (17)
  - BREATH SOUNDS ABNORMAL [None]
  - CARDIAC FAILURE [None]
  - COUGH [None]
  - DISEASE PROGRESSION [None]
  - EOSINOPHIL COUNT INCREASED [None]
  - HYDROTHORAX [None]
  - HYPOALBUMINAEMIA [None]
  - LIVER FUNCTION TEST ABNORMAL [None]
  - OEDEMA [None]
  - PLEURAL EFFUSION [None]
  - PLEURAL FIBROSIS [None]
  - PLEURISY [None]
  - PNEUMONIA [None]
  - PULMONARY EOSINOPHILIA [None]
  - RESPIRATORY FAILURE [None]
  - SKIN DISCOLOURATION [None]
  - WHEEZING [None]
